FAERS Safety Report 8137692-X (Version None)
Quarter: 2012Q1

REPORT INFORMATION
  Report Type: 
  Country: None (occurrence: None)
  Receive Date: 20120215
  Receipt Date: 20120214
  Transmission Date: 20120608
  Serious: Yes (Other)
  Sender: FDA-Public Use
  Company Number: CA-BAYER-2012-014396

PATIENT
  Age: 27 Year
  Sex: Female

DRUGS (1)
  1. LEVONORGESTREL [Suspect]
     Dosage: UNK
     Route: 015

REACTIONS (2)
  - AMENORRHOEA [None]
  - DEVICE DISLOCATION [None]
